FAERS Safety Report 6998097-8 (Version None)
Quarter: 2010Q3

REPORT INFORMATION
  Report Type: 
  Country: None (occurrence: None)
  Receive Date: 20100920
  Receipt Date: 20100721
  Transmission Date: 20110219
  Serious: No
  Sender: FDA-Public Use
  Company Number: US-ASTRAZENECA-2008UW19656

PATIENT
  Age: 24 Year
  Sex: Female
  Weight: 83.9 kg

DRUGS (18)
  1. SEROQUEL [Suspect]
     Indication: BIPOLAR DISORDER
     Route: 048
     Dates: start: 19990318, end: 20070101
  2. SEROQUEL [Suspect]
     Indication: ANXIETY
     Route: 048
     Dates: start: 19990318, end: 20070101
  3. SEROQUEL [Suspect]
     Indication: DEPRESSION
     Route: 048
     Dates: start: 19990318, end: 20070101
  4. SEROQUEL [Suspect]
     Route: 048
     Dates: start: 19990308
  5. SEROQUEL [Suspect]
     Route: 048
     Dates: start: 19990308
  6. SEROQUEL [Suspect]
     Route: 048
     Dates: start: 19990308
  7. ABILIFY [Concomitant]
  8. HALDOL [Concomitant]
  9. RISPERDAL [Concomitant]
  10. ZYPREXA [Concomitant]
  11. SYMBYAX [Concomitant]
  12. DESYREL [Concomitant]
     Dosage: 100-150 MG
     Route: 048
     Dates: start: 19990308
  13. ESKALITH [Concomitant]
     Dosage: TWO BID
     Route: 048
     Dates: start: 19990308
  14. ESKALITH [Concomitant]
     Dates: start: 20040907
  15. DEPAKOTE [Concomitant]
     Route: 048
     Dates: end: 19990308
  16. DEPAKOTE [Concomitant]
     Dates: start: 20040907
  17. PROZAC [Concomitant]
     Route: 048
     Dates: end: 19990308
  18. CELEXA [Concomitant]
     Dates: start: 20040907

REACTIONS (6)
  - BLOOD CHOLESTEROL INCREASED [None]
  - GLYCOSURIA [None]
  - HYPERLIPIDAEMIA [None]
  - INTERVERTEBRAL DISC PROTRUSION [None]
  - OBESITY [None]
  - TYPE 2 DIABETES MELLITUS [None]
